FAERS Safety Report 7180104-3 (Version None)
Quarter: 2010Q4

REPORT INFORMATION
  Report Type: 
  Country: None (occurrence: None)
  Receive Date: 20101221
  Receipt Date: 20101104
  Transmission Date: 20110411
  Serious: Yes (Disabling)
  Sender: FDA-Public Use
  Company Number: GXKR2010GB12506

PATIENT
  Age: 67 Year
  Sex: Female
  Weight: 74 kg

DRUGS (10)
  1. ALENDRONIC ACID (NGX) [Suspect]
     Dosage: UNK
     Route: 048
     Dates: start: 20071012
  2. AMLODIPINE [Suspect]
     Dosage: UNK
     Route: 065
     Dates: start: 20071012
  3. CIPROFLOXACIN (NGX) [Suspect]
     Dosage: UNK
     Route: 065
     Dates: start: 20071012
  4. LOSARTAN (NGX) [Suspect]
     Indication: HYPERTENSION
     Dosage: 100 MG, QD
     Route: 048
     Dates: start: 20070221, end: 20100701
  5. RISEDRONATE SODIUM [Suspect]
     Dosage: UNK
     Route: 065
     Dates: start: 20071204
  6. AMITRIPTYLINE [Suspect]
     Dosage: UNK
     Route: 065
     Dates: start: 20100216
  7. FOSAMAX [Suspect]
     Route: 048
  8. AMITRIPTYLINE HCL [Concomitant]
     Indication: PAIN
     Dosage: 10 MG, UNK
     Route: 065
     Dates: start: 20091019, end: 20100205
  9. AMITRIPTYLINE HCL [Concomitant]
     Indication: IRRITABLE BOWEL SYNDROME
  10. LANSOPRAZOLE [Concomitant]
     Indication: HYPERCHLORHYDRIA
     Dosage: 30 MG, UNK
     Dates: start: 20070221, end: 20100921

REACTIONS (8)
  - ABDOMINAL PAIN UPPER [None]
  - ARTHRALGIA [None]
  - BLOOD PRESSURE INCREASED [None]
  - DIARRHOEA [None]
  - HEART RATE INCREASED [None]
  - IRRITABLE BOWEL SYNDROME [None]
  - NAUSEA [None]
  - PANIC ATTACK [None]
